FAERS Safety Report 10448349 (Version 3)
Quarter: 2014Q4

REPORT INFORMATION
  Report Type: Report from Study
  Country: US (occurrence: US)
  Receive Date: 20140911
  Receipt Date: 20141009
  Transmission Date: 20150528
  Serious: Yes (Hospitalization)
  Sender: FDA-Public Use
  Company Number: US-ACTELION-A-NJ2014-104895

PATIENT
  Age: 79 Year
  Sex: Female

DRUGS (4)
  1. SILDENAFIL. [Concomitant]
     Active Substance: SILDENAFIL
  2. ASPIRIN. [Concomitant]
     Active Substance: ASPIRIN
  3. COUMADIN [Concomitant]
     Active Substance: WARFARIN SODIUM
  4. TRACLEER [Suspect]
     Active Substance: BOSENTAN\BOSENTAN MONOHYDRATE
     Indication: PULMONARY ARTERIAL HYPERTENSION
     Dosage: UNK
     Route: 048

REACTIONS (7)
  - White blood cell count increased [Unknown]
  - Foot fracture [Unknown]
  - Seizure [Unknown]
  - Pneumonia [Unknown]
  - Fall [Unknown]
  - Malaise [Unknown]
  - Haemorrhoids [Unknown]
